FAERS Safety Report 25824932 (Version 1)
Quarter: 2025Q3

REPORT INFORMATION
  Report Type: Spontaneous
  Country: US (occurrence: US)
  Receive Date: 20250919
  Receipt Date: 20250919
  Transmission Date: 20251021
  Serious: No
  Sender: PFIZER
  Company Number: US-PFIZER INC-PV202500112829

PATIENT

DRUGS (4)
  1. PANTOPRAZOLE [Suspect]
     Active Substance: PANTOPRAZOLE
     Indication: Colitis ulcerative
  2. HYDROCORTISONE [Suspect]
     Active Substance: HYDROCORTISONE
     Indication: Colitis ulcerative
  3. ACYCLOVIR [Suspect]
     Active Substance: ACYCLOVIR
     Indication: Colitis ulcerative
  4. FAMOTIDINE [Suspect]
     Active Substance: FAMOTIDINE
     Indication: Colitis ulcerative

REACTIONS (4)
  - Vaginal disorder [Unknown]
  - Anorectal disorder [Unknown]
  - Drug ineffective [Unknown]
  - Off label use [Unknown]

NARRATIVE: CASE EVENT DATE: 20250101
